FAERS Safety Report 12897125 (Version 2)
Quarter: 2016Q4

REPORT INFORMATION
  Report Type: Report from Study
  Country: US (occurrence: US)
  Receive Date: 20161031
  Receipt Date: 20161115
  Transmission Date: 20170207
  Serious: Yes (Hospitalization, Other)
  Sender: FDA-Public Use
  Company Number: US-ALEXION PHARMACEUTICALS INC-A201608220

PATIENT
  Sex: Male

DRUGS (1)
  1. SOLIRIS [Suspect]
     Active Substance: ECULIZUMAB
     Indication: HAEMOLYTIC URAEMIC SYNDROME
     Dosage: 900 MG, QW
     Route: 042
     Dates: end: 2016

REACTIONS (5)
  - Haematocrit abnormal [Unknown]
  - Diverticulitis [Not Recovered/Not Resolved]
  - Haemoglobin abnormal [Unknown]
  - Platelet count abnormal [Unknown]
  - Delirium [Unknown]

NARRATIVE: CASE EVENT DATE: 20161025
